FAERS Safety Report 6329566-1 (Version None)
Quarter: 2009Q3

REPORT INFORMATION
  Report Type: 
  Country: None (occurrence: None)
  Receive Date: 20090820
  Receipt Date: 20090616
  Transmission Date: 20100115
  Serious: Yes (Other)
  Sender: FDA-Public Use
  Company Number: WWISSUE-307

PATIENT

DRUGS (1)
  1. HYDROXYCHLOROQUINE SULFATE  USP [Suspect]
     Dosage: ORAL
     Route: 048

REACTIONS (5)
  - ANXIETY [None]
  - DIZZINESS [None]
  - HEADACHE [None]
  - HYPOAESTHESIA [None]
  - PRURITUS [None]
